FAERS Safety Report 14239365 (Version 1)
Quarter: 2017Q4

REPORT INFORMATION
  Report Type: Spontaneous
  Country: PL (occurrence: PL)
  Receive Date: 20171130
  Receipt Date: 20171130
  Transmission Date: 20180321
  Serious: Yes (Other)
  Sender: FDA-Public Use
  Company Number: PL-ASTRAZENECA-2017SF19771

PATIENT
  Age: 29320 Day
  Sex: Male

DRUGS (1)
  1. IRESSA [Suspect]
     Active Substance: GEFITINIB
     Dosage: 250
     Route: 048
     Dates: start: 20170921, end: 20171022

REACTIONS (1)
  - Treatment failure [Unknown]

NARRATIVE: CASE EVENT DATE: 20171022
